FAERS Safety Report 19786073 (Version 7)
Quarter: 2022Q3

REPORT INFORMATION
  Report Type: Report from Study
  Country: US (occurrence: US)
  Receive Date: 20210903
  Receipt Date: 20220730
  Transmission Date: 20221027
  Serious: Yes (Other)
  Sender: FDA-Public Use
  Company Number: US-NOVARTISPH-NVSC2021US199905

PATIENT
  Sex: Female

DRUGS (1)
  1. ENTRESTO [Suspect]
     Active Substance: SACUBITRIL\VALSARTAN
     Indication: Cardiac failure
     Dosage: 1 DOSAGE FORM, BID (97/103 MG)
     Route: 048
     Dates: start: 201912

REACTIONS (7)
  - Neoplasm malignant [Unknown]
  - Dust allergy [Unknown]
  - Sneezing [Unknown]
  - Rhinorrhoea [Unknown]
  - Cough [Unknown]
  - Blood pressure decreased [Unknown]
  - Solar lentigo [Unknown]
